FAERS Safety Report 23522469 (Version 2)
Quarter: 2024Q3

REPORT INFORMATION
  Report Type: Spontaneous
  Country: CA (occurrence: CA)
  Receive Date: 20240214
  Receipt Date: 20240703
  Transmission Date: 20241016
  Serious: Yes (Other)
  Sender: TEVA
  Company Number: CA-TEVA-VS-3152771

PATIENT
  Age: 72 Year
  Sex: Male

DRUGS (3)
  1. ACETAMINOPHEN\OXYCODONE HYDROCHLORIDE [Suspect]
     Active Substance: ACETAMINOPHEN\OXYCODONE HYDROCHLORIDE
     Indication: Pain
     Dosage: (OXYCODONE AND 325 MG. ACETAMINOPH (SP.))
     Route: 065
  2. CODEINE [Concomitant]
     Active Substance: CODEINE
     Indication: Pain
     Route: 065
  3. CODEINE [Concomitant]
     Active Substance: CODEINE
     Indication: Pain
     Dosage: DOUBLE DOSE
     Route: 065

REACTIONS (5)
  - Rotator cuff syndrome [Unknown]
  - Feeling abnormal [Unknown]
  - Somnolence [Unknown]
  - Headache [Unknown]
  - Hypertension [Unknown]
